FAERS Safety Report 13982649 (Version 4)
Quarter: 2022Q2

REPORT INFORMATION
  Report Type: Report from Study
  Country: JP (occurrence: JP)
  Receive Date: 20170918
  Receipt Date: 20220426
  Transmission Date: 20220721
  Serious: Yes (Hospitalization)
  Sender: FDA-Public Use
  Company Number: JP-BIOGEN-2017BI00456471

PATIENT
  Age: 41 Year
  Sex: Female
  Weight: 61 kg

DRUGS (4)
  1. TECFIDERA [Suspect]
     Active Substance: DIMETHYL FUMARATE
     Indication: Secondary progressive multiple sclerosis
     Route: 050
     Dates: start: 20170726, end: 20170905
  2. TECFIDERA [Suspect]
     Active Substance: DIMETHYL FUMARATE
     Route: 050
     Dates: start: 20170906, end: 20171020
  3. TIZANIDINE [Concomitant]
     Active Substance: TIZANIDINE
     Route: 050
  4. LIORESAL [Concomitant]
     Active Substance: BACLOFEN
     Route: 050

REACTIONS (1)
  - Endometrial cancer [Recovered/Resolved]

NARRATIVE: CASE EVENT DATE: 20171004
